FAERS Safety Report 19919361 (Version 1)
Quarter: 2021Q4

REPORT INFORMATION
  Report Type: Spontaneous
  Country: FR (occurrence: FR)
  Receive Date: 20211005
  Receipt Date: 20211005
  Transmission Date: 20220303
  Serious: Yes (Death)
  Sender: FDA-Public Use
  Company Number: FR-PFIZER INC-2021619187

PATIENT
  Age: 56 Year
  Sex: Female

DRUGS (15)
  1. CYTARABINE [Suspect]
     Active Substance: CYTARABINE
     Indication: Burkitt^s leukaemia
     Dosage: 100 MG/M2/DAYFROM DAY 1 TO DAY 5 (24-H INFUSION), CONSOLIDATION PHASE
  2. METHOTREXATE [Suspect]
     Active Substance: METHOTREXATE
     Indication: Burkitt^s leukaemia
     Dosage: 3 GRAM PER SQUARE METRE ON DAY 1, CONSECUTIVE COURSE, COPADM 1
  3. METHOTREXATE [Suspect]
     Active Substance: METHOTREXATE
     Dosage: 3 GRAM PER SQUARE METRE ON DAY 1, CONSECUTIVE COURSE, COPADM 1
  4. PREDNISONE [Suspect]
     Active Substance: PREDNISONE
     Indication: Burkitt^s leukaemia
     Dosage: 60 MG/M2/DAY FROM DAY 1 TO DAY 7, CYTOREDUCTIVE PHASE
  5. PREDNISONE [Suspect]
     Active Substance: PREDNISONE
     Dosage: 60 MG/M2/DAY FROM DAY 1 TO DAY 7, CONSECUTIVE COURSE, COPADM 1
  6. DOXORUBICIN HYDROCHLORIDE [Suspect]
     Active Substance: DOXORUBICIN HYDROCHLORIDE
     Indication: Burkitt^s leukaemia
     Dosage: 60 MG/M2/DAY ON DAY 2, CONSECUTIVE COURSE, COPADM 1
  7. DOXORUBICIN HYDROCHLORIDE [Suspect]
     Active Substance: DOXORUBICIN HYDROCHLORIDE
     Dosage: 60 MG/M2/DAY ON DAY 2, MAINTENANCE
  8. CYCLOPHOSPHAMIDE [Suspect]
     Active Substance: CYCLOPHOSPHAMIDE
     Indication: Burkitt^s leukaemia
     Dosage: 500 MG/M2/DAY ON DAY 1 AND DAY 2, MAINTENANCE
  9. CYCLOPHOSPHAMIDE [Suspect]
     Active Substance: CYCLOPHOSPHAMIDE
     Dosage: 300 MG/M2/DAY ON DAY 1, CYTOREDUCTIVE PHASE
  10. CYCLOPHOSPHAMIDE [Suspect]
     Active Substance: CYCLOPHOSPHAMIDE
     Dosage: 1000 MG/M2/DAY FROM DAY 2 TO DAY 4, CONSECUTIVE COURSE, COPADM 2
  11. CYCLOPHOSPHAMIDE [Suspect]
     Active Substance: CYCLOPHOSPHAMIDE
     Dosage: 500 MG/M2/DAY FROM DAY 2 TO DAY 4, CONSECUTIVE COURSE, COPADM 1
  12. VINCRISTINE SULFATE [Suspect]
     Active Substance: VINCRISTINE SULFATE
     Indication: Burkitt^s leukaemia
     Dosage: 2 MG/DAY ON DAY 1, CONSECUTIVE COURSE, COPADM 1
  13. VINCRISTINE SULFATE [Suspect]
     Active Substance: VINCRISTINE SULFATE
     Dosage: 2 MG/DAY ON DAY 1, MAINTENANCE
  14. VINCRISTINE SULFATE [Suspect]
     Active Substance: VINCRISTINE SULFATE
     Dosage: 2 MG/DAY ON DAY 1, CYTOREDUCTIVE PHASE
  15. VINCRISTINE SULFATE [Suspect]
     Active Substance: VINCRISTINE SULFATE
     Dosage: 2 MG/DAY ON DAY 1 AND DAY 6, CONSECUTIVE COURSE, COPADM 2

REACTIONS (1)
  - Sepsis [Fatal]
